FAERS Safety Report 16027730 (Version 1)
Quarter: 2019Q1

REPORT INFORMATION
  Report Type: Spontaneous
  Country: US (occurrence: US)
  Receive Date: 20190304
  Receipt Date: 20190304
  Transmission Date: 20190418
  Serious: No
  Sender: FDA-Public Use
  Company Number: US-IMPAX LABORATORIES, LLC-2018-IPXL-00785

PATIENT
  Sex: Female
  Weight: 79 kg

DRUGS (4)
  1. RYTARY [Suspect]
     Active Substance: CARBIDOPA\LEVODOPA
     Indication: PARKINSON^S DISEASE
     Dosage: 23.75/95MG, 1 CAPSULE, 3 /DAY
     Route: 048
     Dates: start: 201802
  2. RYTARY [Suspect]
     Active Substance: CARBIDOPA\LEVODOPA
     Dosage: 23.75/95 MG, 3 CAPSULES IN MORNING, 2 IN NOON AND 2 IN EVENING
     Route: 048
     Dates: end: 20180313
  3. LEVOTHYROXINE. [Concomitant]
     Active Substance: LEVOTHYROXINE
     Indication: HYPOTHYROIDISM
     Dosage: UNK
     Route: 065
  4. RYTARY [Suspect]
     Active Substance: CARBIDOPA\LEVODOPA
     Dosage: 23.75/95 MG, 2 CAPSULES, 3 TIMES DAILY
     Route: 048

REACTIONS (5)
  - Drug effect incomplete [Unknown]
  - Freezing phenomenon [Not Recovered/Not Resolved]
  - Drug effect variable [Unknown]
  - Balance disorder [Unknown]
  - Tremor [Not Recovered/Not Resolved]

NARRATIVE: CASE EVENT DATE: 2018
